FAERS Safety Report 7032599-3 (Version None)
Quarter: 2010Q4

REPORT INFORMATION
  Report Type: 
  Country: None (occurrence: None)
  Receive Date: 20101007
  Receipt Date: 20100928
  Transmission Date: 20110411
  Serious: Yes (Life-Threatening, Hospitalization)
  Sender: FDA-Public Use
  Company Number: BE-ROCHE-721689

PATIENT
  Sex: Female

DRUGS (10)
  1. TRASTUZUMAB [Suspect]
     Indication: BREAST CANCER
     Route: 042
     Dates: start: 20080918
  2. PACLITAXEL [Suspect]
     Indication: BREAST CANCER
     Route: 065
  3. LISINOPRIL AND HYDROCHLOROTHIAZIDE [Concomitant]
     Dates: start: 20070101
  4. BROMAZEPAM [Concomitant]
     Dates: start: 20070101
  5. ASPIRIN [Concomitant]
     Dates: start: 20081124
  6. DOMPERIDONE [Concomitant]
  7. BISOPROLOL [Concomitant]
     Dates: start: 20100801
  8. THEBACON [Concomitant]
  9. LEVOCETIRIZINE HYDROCHLORIDE [Concomitant]
  10. METOCLOPRAMIDE [Concomitant]

REACTIONS (2)
  - ATRIAL FIBRILLATION [None]
  - PULMONARY OEDEMA [None]
